FAERS Safety Report 17087022 (Version 3)
Quarter: 2023Q4

REPORT INFORMATION
  Report Type: Report from Study
  Country: IT (occurrence: IT)
  Receive Date: 20191128
  Receipt Date: 20231230
  Transmission Date: 20240110
  Serious: Yes (Death)
  Sender: FDA-Public Use
  Company Number: None

PATIENT

DRUGS (2)
  1. COPAXONE [Suspect]
     Active Substance: GLATIRAMER ACETATE
     Indication: Relapsing-remitting multiple sclerosis
     Dosage: DOSAGE TEXT: 1 DF PER 2 DAYS
     Route: 065
     Dates: start: 20180901, end: 20190201
  2. SOLU-MEDROL [Suspect]
     Active Substance: METHYLPREDNISOLONE SODIUM SUCCINATE
     Indication: Multiple sclerosis relapse
     Dosage: DOSAGE TEXT: 1000 MG / 16 ML ; 1 DF
     Route: 065
     Dates: start: 20190507, end: 20190511

REACTIONS (1)
  - Premature baby [Fatal]

NARRATIVE: CASE EVENT DATE: 20190511
